FAERS Safety Report 7390892-9 (Version None)
Quarter: 2011Q2

REPORT INFORMATION
  Report Type: 
  Country: None (occurrence: None)
  Receive Date: 20110404
  Receipt Date: 20110325
  Transmission Date: 20111010
  Serious: No
  Sender: FDA-Public Use
  Company Number: US-BIOGENIDEC-2011BI011135

PATIENT
  Sex: Male

DRUGS (4)
  1. BACLOFEN [Concomitant]
     Indication: PAIN
  2. AVONEX [Suspect]
     Indication: MULTIPLE SCLEROSIS
     Route: 030
     Dates: start: 20010323, end: 20030801
  3. AVONEX [Suspect]
     Route: 030
     Dates: start: 20030801
  4. MEDICATION (NOS) [Concomitant]
     Indication: INITIAL INSOMNIA

REACTIONS (3)
  - GAIT DISTURBANCE [None]
  - PAIN [None]
  - FALL [None]
